FAERS Safety Report 18199062 (Version 1)
Quarter: 2020Q3

REPORT INFORMATION
  Report Type: Spontaneous
  Country: FR (occurrence: FR)
  Receive Date: 20200826
  Receipt Date: 20200826
  Transmission Date: 20201103
  Serious: Yes (Hospitalization)
  Sender: FDA-Public Use
  Company Number: FR-ELI_LILLY_AND_COMPANY-FR202008006255

PATIENT
  Age: 77 Year
  Sex: Female

DRUGS (2)
  1. ARIMIDEX [Suspect]
     Active Substance: ANASTROZOLE
     Indication: INTRADUCTAL PROLIFERATIVE BREAST LESION
     Dosage: 1 MG, DAILY
     Route: 048
     Dates: start: 20200322
  2. VERZENIO [Suspect]
     Active Substance: ABEMACICLIB
     Indication: INTRADUCTAL PROLIFERATIVE BREAST LESION
     Dosage: 300 MG, DAILY
     Route: 048
     Dates: start: 20200429

REACTIONS (2)
  - Diarrhoea [Unknown]
  - Acute kidney injury [Recovering/Resolving]

NARRATIVE: CASE EVENT DATE: 202005
